FAERS Safety Report 6181366-1 (Version None)
Quarter: 2009Q2

REPORT INFORMATION
  Report Type: 
  Country: None (occurrence: None)
  Receive Date: 20090506
  Receipt Date: 20090430
  Transmission Date: 20091009
  Serious: Yes (Hospitalization)
  Sender: FDA-Public Use
  Company Number: US-ELI_LILLY_AND_COMPANY-US200905000112

PATIENT
  Sex: Female

DRUGS (2)
  1. HUMULIN 70/30 [Suspect]
  2. PLAVIX [Concomitant]
     Indication: CARDIAC DISORDER

REACTIONS (5)
  - HERNIA [None]
  - HERNIA REPAIR [None]
  - INFECTION [None]
  - MALAISE [None]
  - PAIN [None]
